FAERS Safety Report 14299853 (Version 3)
Quarter: 2018Q1

REPORT INFORMATION
  Report Type: Spontaneous
  Country: JP (occurrence: JP)
  Receive Date: 20171219
  Receipt Date: 20180214
  Transmission Date: 20180509
  Serious: Yes (Hospitalization, Other)
  Sender: FDA-Public Use
  Company Number: JP-ROCHE-2039666

PATIENT
  Age: 66 Year
  Sex: Male
  Weight: 48 kg

DRUGS (2)
  1. OXALIPLATIN. [Concomitant]
     Active Substance: OXALIPLATIN
     Indication: RECTAL CANCER
     Route: 041
  2. XELODA [Suspect]
     Active Substance: CAPECITABINE
     Indication: RECTAL CANCER
     Dosage: 2 WEEKS ADMINISTRATION FOLLOWED?BY 1 WEEK REST?MOST RECENT DOSE:02/DEC/2017
     Route: 048
     Dates: start: 20171130

REACTIONS (3)
  - Large intestinal ulcer [Recovering/Resolving]
  - Mesenteric vascular insufficiency [Unknown]
  - Enterocolitis [Recovering/Resolving]

NARRATIVE: CASE EVENT DATE: 20171203
